FAERS Safety Report 6360774-X (Version None)
Quarter: 2009Q3

REPORT INFORMATION
  Report Type: 
  Country: None (occurrence: None)
  Receive Date: 20090918
  Receipt Date: 20090909
  Transmission Date: 20100115
  Serious: Yes (Hospitalization)
  Sender: FDA-Public Use
  Company Number: PR-JNJFOC-20090806799

PATIENT
  Age: 13 Year
  Sex: Male

DRUGS (2)
  1. PEPCID AC [Suspect]
     Route: 048
  2. PEPCID AC [Suspect]
     Indication: ABDOMINAL PAIN UPPER
     Route: 048

REACTIONS (6)
  - CONSTIPATION [None]
  - DRUG INEFFECTIVE [None]
  - EXPIRED DRUG ADMINISTERED [None]
  - GASTRITIS [None]
  - OESOPHAGITIS [None]
  - PRODUCT EXPIRATION DATE ISSUE [None]
